FAERS Safety Report 11745374 (Version 1)
Quarter: 2015Q4

REPORT INFORMATION
  Report Type: Spontaneous
  Country: US (occurrence: None)
  Receive Date: 20151116
  Receipt Date: 20151116
  Transmission Date: 20160304
  Serious: Yes (Death)
  Sender: FDA-Public Use
  Company Number: None

PATIENT
  Age: 38 Year
  Sex: Female
  Weight: 65.77 kg

DRUGS (3)
  1. MAKENA [Suspect]
     Active Substance: HYDROXYPROGESTERONE CAPROATE
     Indication: PROPHYLAXIS
     Dosage: WEEKLY GIVEN INTO/UNDER THE SKIN
     Dates: start: 20150701, end: 20151030
  2. PRENATAL VITAMINS [Concomitant]
     Active Substance: VITAMINS
  3. MAKENA [Suspect]
     Active Substance: HYDROXYPROGESTERONE CAPROATE
     Indication: PREMATURE LABOUR
     Dosage: WEEKLY GIVEN INTO/UNDER THE SKIN
     Dates: start: 20150701, end: 20151030

REACTIONS (3)
  - Maternal drugs affecting foetus [None]
  - Maternal exposure during pregnancy [None]
  - Stillbirth [None]

NARRATIVE: CASE EVENT DATE: 20151101
